FAERS Safety Report 25728605 (Version 1)
Quarter: 2025Q3

REPORT INFORMATION
  Report Type: Spontaneous
  Country: CN (occurrence: CN)
  Receive Date: 20250826
  Receipt Date: 20250826
  Transmission Date: 20251021
  Serious: Yes (Other)
  Sender: MERCK SHARP & DOHME LLC
  Company Number: CN-009507513-2322901

PATIENT
  Age: 7 Year
  Sex: Female
  Weight: 30 kg

DRUGS (2)
  1. INVANZ [Suspect]
     Active Substance: ERTAPENEM SODIUM
     Indication: Herpangina
     Route: 041
     Dates: start: 20250814, end: 20250814
  2. SODIUM CHLORIDE [Concomitant]
     Active Substance: SODIUM CHLORIDE
     Indication: Medication dilution
     Dosage: 0.9%
     Dates: start: 20250814, end: 20250814

REACTIONS (4)
  - Chest discomfort [Recovering/Resolving]
  - Herpangina [Unknown]
  - Product use in unapproved indication [Unknown]
  - Chest pain [Unknown]

NARRATIVE: CASE EVENT DATE: 20250814
